FAERS Safety Report 9052854 (Version 2)
Quarter: 2013Q4

REPORT INFORMATION
  Report Type: Spontaneous
  Country: DK (occurrence: IT)
  Receive Date: 20130207
  Receipt Date: 20131209
  Transmission Date: 20140711
  Serious: Yes (Hospitalization)
  Sender: FDA-Public Use
  Company Number: IT-FRI-1000042489

PATIENT
  Age: 56 Year
  Sex: Female

DRUGS (6)
  1. ESCITALOPRAM [Suspect]
     Dosage: 18 TABLETS TAKEN AT ONCE AS AN OVERDOSE.
     Route: 048
     Dates: start: 20120805, end: 20120805
  2. PARACETAMOL [Suspect]
     Dosage: 28 TABLETS TAKEN AT ONCE AS AN OVERDOSE.
     Route: 048
     Dates: start: 20120805, end: 20120805
  3. VENLAFAXINE [Suspect]
     Dosage: 21 TABLETS TAKEN AT ONCE AS AN OVERDOSE.
     Route: 048
     Dates: start: 20120805, end: 20120805
  4. PATROL [Suspect]
     Dosage: (37.5 MG/325 MG) 4 TABLETS TAKEN AT ONCE AS AN OVERDOSE.
     Route: 048
     Dates: start: 20120805, end: 20120805
  5. MOMENT [Suspect]
     Dosage: 18 TABLETS TAKEN AT ONCE AS AN OVERDOSE.
     Route: 048
     Dates: start: 20120805, end: 20120805
  6. LEXOTAN [Suspect]
     Dosage: 51 TABLETS TAKEN AT ONCE AS AN OVERDOSE.
     Route: 048
     Dates: start: 20120805, end: 20120805

REACTIONS (4)
  - Respiratory acidosis [Recovering/Resolving]
  - Respiratory depression [Recovering/Resolving]
  - Sopor [Unknown]
  - Intentional overdose [Recovering/Resolving]
